FAERS Safety Report 11271270 (Version 1)
Quarter: 2015Q3

REPORT INFORMATION
  Report Type: Spontaneous
  Country: US (occurrence: US)
  Receive Date: 20150714
  Receipt Date: 20150714
  Transmission Date: 20151125
  Serious: Yes (Death, Other)
  Sender: FDA-Public Use
  Company Number: PHHY2015US081336

PATIENT
  Age: 23 Year
  Sex: Female

DRUGS (5)
  1. VINBLASTINE [Suspect]
     Active Substance: VINBLASTINE
     Indication: NON-RENAL CELL CARCINOMA OF KIDNEY
     Dosage: 3 MG/M2, UNK
     Route: 065
  2. CISPLATIN. [Suspect]
     Active Substance: CISPLATIN
     Indication: NON-RENAL CELL CARCINOMA OF KIDNEY
     Dosage: 70 MG/M2, UNK
     Route: 065
  3. METHOTREXATE [Suspect]
     Active Substance: METHOTREXATE
     Indication: NON-RENAL CELL CARCINOMA OF KIDNEY
     Dosage: 30 MG/M2, UNK
     Route: 065
  4. DOXORUBICIN [Suspect]
     Active Substance: DOXORUBICIN
     Indication: NON-RENAL CELL CARCINOMA OF KIDNEY
     Dosage: 30 MG/M2, UNK
     Route: 065
  5. PEGFILGRASTIM [Concomitant]
     Active Substance: PEGFILGRASTIM
     Indication: PROPHYLAXIS
     Route: 065

REACTIONS (5)
  - Vomiting [Unknown]
  - Malignant neoplasm progression [Unknown]
  - Non-renal cell carcinoma of kidney [Fatal]
  - Renal failure [Unknown]
  - Nausea [Unknown]
